FAERS Safety Report 5924879-7 (Version None)
Quarter: 2008Q4

REPORT INFORMATION
  Report Type: 
  Country: None (occurrence: None)
  Receive Date: 20081017
  Receipt Date: 20081017
  Transmission Date: 20090506
  Serious: Yes (Life-Threatening)
  Sender: FDA-Public Use
  Company Number: None

PATIENT
  Age: 55 Year
  Sex: Male
  Weight: 55.6 kg

DRUGS (1)
  1. MOXIFLOXACIN HCL [Suspect]
     Indication: KLEBSIELLA BACTERAEMIA
     Dosage: 400MG DAILY PO
     Route: 048
     Dates: start: 20080604, end: 20081002

REACTIONS (2)
  - DRUG HYPERSENSITIVITY [None]
  - NEUTROPENIA [None]
